FAERS Safety Report 10754233 (Version 1)
Quarter: 2015Q1

REPORT INFORMATION
  Report Type: Spontaneous
  Country: GB (occurrence: GB)
  Receive Date: 20150202
  Receipt Date: 20150202
  Transmission Date: 20150721
  Serious: Yes (Hospitalization)
  Sender: FDA-Public Use
  Company Number: GB-MERCK-1501GBR011579

PATIENT
  Age: 61 Year
  Sex: Female
  Weight: 83.1 kg

DRUGS (9)
  1. VANCOMYCIN [Concomitant]
     Active Substance: VANCOMYCIN
     Indication: CLOSTRIDIUM DIFFICILE COLITIS
     Dosage: ONGOING
     Route: 048
     Dates: start: 20150102
  2. RESONIUM CALCIUM [Concomitant]
     Dosage: UNK
  3. BISOPROLOL [Concomitant]
     Active Substance: BISOPROLOL
     Indication: ATRIAL FIBRILLATION
     Dosage: COMMENCED PRIOR TO ADMISSION, ONGOING
     Route: 048
  4. WARFARIN [Concomitant]
     Active Substance: WARFARIN
     Indication: ATRIAL FIBRILLATION
     Dosage: COMMENCED PRIOR TO ADMISSION, ONGOING
     Route: 048
  5. DIGOXIN. [Concomitant]
     Active Substance: DIGOXIN
     Dosage: UNK
  6. INVANZ [Suspect]
     Active Substance: ERTAPENEM SODIUM
     Indication: INTERVERTEBRAL DISCITIS
     Dosage: 1 G, QD
     Route: 042
     Dates: start: 20141224, end: 20150110
  7. SODIUM BICARBONATE. [Concomitant]
     Active Substance: SODIUM BICARBONATE
     Dosage: UNK
  8. FLUOXETINE [Concomitant]
     Active Substance: FLUOXETINE\FLUOXETINE HYDROCHLORIDE
     Indication: AFFECTIVE DISORDER
     Dosage: COMMENCED PRIOR TO ADMISSION, ONGOING
     Route: 048
  9. FERROUS SULFATE [Concomitant]
     Active Substance: FERROUS SULFATE\FERROUS SULFATE, DRIED
     Indication: IRON DEFICIENCY
     Dosage: COMMENCED PRIOR TO ADMISSION, ONGOING
     Route: 048

REACTIONS (3)
  - Agitation [Recovered/Resolved]
  - Confusional state [Recovered/Resolved]
  - Hallucination [Recovered/Resolved]
